FAERS Safety Report 22046272 (Version 1)
Quarter: 2023Q1

REPORT INFORMATION
  Report Type: Report from Study
  Country: US (occurrence: US)
  Receive Date: 20230228
  Receipt Date: 20230228
  Transmission Date: 20230418
  Serious: Yes (Hospitalization)
  Sender: FDA-Public Use
  Company Number: US-TEVA-2023-US-2859575

PATIENT
  Sex: Female

DRUGS (2)
  1. VINORELBINE [Suspect]
     Active Substance: VINORELBINE TARTRATE
     Indication: Breast cancer female
     Dosage: 21-DAY CYCLE WITH FOUR PLANNED CYCLES
     Route: 065
  2. TRASTUZUMAB [Suspect]
     Active Substance: TRASTUZUMAB
     Indication: Breast cancer female
     Route: 065

REACTIONS (2)
  - Chills [Unknown]
  - Pyrexia [Unknown]
